FAERS Safety Report 9999472 (Version 1)
Quarter: 2014Q1

REPORT INFORMATION
  Report Type: Spontaneous
  Country: US (occurrence: None)
  Receive Date: 20140311
  Receipt Date: 20140311
  Transmission Date: 20141002
  Serious: Yes (Hospitalization)
  Sender: FDA-Public Use
  Company Number: None

PATIENT
  Age: 60 Year
  Sex: Male
  Weight: 79.6 kg

DRUGS (2)
  1. TICAGRELOR [Suspect]
     Route: 048
     Dates: start: 20130718, end: 20131209
  2. ASPIRIN [Suspect]
     Route: 048
     Dates: start: 20130718, end: 20131209

REACTIONS (1)
  - Gastrointestinal haemorrhage [None]
